FAERS Safety Report 6871022-6 (Version None)
Quarter: 2010Q3

REPORT INFORMATION
  Report Type: 
  Country: None (occurrence: None)
  Receive Date: 20100723
  Receipt Date: 20100716
  Transmission Date: 20110219
  Serious: Yes (Hospitalization)
  Sender: FDA-Public Use
  Company Number: GB-SHIRE-SPV1-2010-00730

PATIENT

DRUGS (4)
  1. XAGRID [Suspect]
     Indication: ESSENTIAL THROMBOCYTHAEMIA
     Dosage: 1.5 MG, 3X/DAY:TID
     Route: 048
     Dates: start: 20080915
  2. ASPIRIN [Concomitant]
     Indication: ESSENTIAL THROMBOCYTHAEMIA
     Dosage: 75 MG, 1X/DAY:QD
     Route: 065
  3. RAMIPRIL [Concomitant]
     Indication: HYPERTENSION
     Dosage: 10 MG, 1X/DAY:QD
     Dates: start: 20100401
  4. AMLODIPINE [Concomitant]
     Indication: HYPERTENSION
     Dosage: 5 MG, 1X/DAY:QD
     Dates: end: 20100401

REACTIONS (1)
  - PROTEINURIA [None]
